FAERS Safety Report 6990463-X (Version None)
Quarter: 2010Q3

REPORT INFORMATION
  Report Type: 
  Country: None (occurrence: None)
  Receive Date: 20100916
  Receipt Date: 20100628
  Transmission Date: 20110219
  Serious: Yes (Hospitalization)
  Sender: FDA-Public Use
  Company Number: FR-PFIZER INC-2010080012

PATIENT
  Sex: Female
  Weight: 60 kg

DRUGS (17)
  1. LYRICA [Suspect]
     Dosage: UNK
     Route: 048
     Dates: end: 20100421
  2. ENDOXAN [Suspect]
     Dosage: 0.6 G/M2 - 1ST COURSE
     Route: 042
     Dates: start: 20091115
  3. ENDOXAN [Suspect]
     Dosage: 0.6 G/M2 - 2ND COURSE
     Route: 042
     Dates: start: 20091201
  4. ENDOXAN [Suspect]
     Dosage: 0.6 G/M2 - 3RD COURSE
     Route: 042
     Dates: start: 20091222
  5. ENDOXAN [Suspect]
     Dosage: 0.6 G/M2 - 4TH COURSE
     Route: 042
     Dates: start: 20100112
  6. ENDOXAN [Suspect]
     Dosage: 150 MG DAILY
     Route: 048
     Dates: start: 20100121, end: 20100322
  7. ENDOXAN [Suspect]
     Dosage: 100 MG, 1X/DAY
     Route: 048
     Dates: start: 20100402, end: 20100420
  8. BACTRIM [Suspect]
     Dosage: 1 DF, 1X/DAY
     Route: 048
     Dates: start: 20100101, end: 20100421
  9. NEXIUM [Suspect]
     Dosage: UNK
     Route: 048
     Dates: end: 20100421
  10. PRAVASTATIN SODIUM [Suspect]
     Dosage: UNK
     Route: 048
     Dates: start: 20100101, end: 20100421
  11. MESNA [Concomitant]
     Dosage: UNK
     Dates: end: 20100421
  12. ISOPTIN [Concomitant]
     Dosage: UNK
  13. COUMADIN [Concomitant]
     Dosage: UNK
  14. RIVOTRIL [Concomitant]
     Dosage: UNK
  15. DOLIPRANE [Concomitant]
     Dosage: UNK
  16. NEBIVOLOL HYDROCHLORIDE [Concomitant]
     Dosage: UNK
  17. CORTANCYL [Concomitant]
     Dosage: UNK

REACTIONS (2)
  - AGRANULOCYTOSIS [None]
  - PYREXIA [None]
